FAERS Safety Report 14538789 (Version 4)
Quarter: 2018Q1

REPORT INFORMATION
  Report Type: Spontaneous
  Country: US (occurrence: US)
  Receive Date: 20180216
  Receipt Date: 20180309
  Transmission Date: 20180509
  Serious: Yes (Hospitalization, Other)
  Sender: FDA-Public Use
  Company Number: US-UNITED THERAPEUTICS-UNT-2018-001975

PATIENT
  Age: 29 Year
  Sex: Female
  Weight: 53.61 kg

DRUGS (2)
  1. SILDENAFIL CITRATE. [Concomitant]
     Active Substance: SILDENAFIL CITRATE
     Indication: PRODUCT USED FOR UNKNOWN INDICATION
     Route: 065
  2. REMODULIN [Suspect]
     Active Substance: TREPROSTINIL
     Indication: PULMONARY ARTERIAL HYPERTENSION
     Dosage: 0.185 ?G/KG, CONTINUING
     Route: 041
     Dates: start: 20101022

REACTIONS (2)
  - Blood count abnormal [Unknown]
  - Haemoptysis [Unknown]

NARRATIVE: CASE EVENT DATE: 20180210
